FAERS Safety Report 6261814-9 (Version None)
Quarter: 2009Q3

REPORT INFORMATION
  Report Type: 
  Country: None (occurrence: None)
  Receive Date: 20090709
  Receipt Date: 20090701
  Transmission Date: 20100115
  Serious: Yes (Death)
  Sender: FDA-Public Use
  Company Number: US-BAXTER-2009BH010934

PATIENT
  Age: 2 Year
  Sex: Male

DRUGS (1)
  1. KIOVIG [Suspect]
     Indication: BLOOD IMMUNOGLOBULIN G DECREASED
     Route: 042
     Dates: start: 20081001, end: 20090319

REACTIONS (2)
  - ACUTE LYMPHOCYTIC LEUKAEMIA [None]
  - DISEASE PROGRESSION [None]
